FAERS Safety Report 5537476-2 (Version None)
Quarter: 2007Q4

REPORT INFORMATION
  Report Type: 
  Country: None (occurrence: None)
  Receive Date: 20071207
  Receipt Date: 20071127
  Transmission Date: 20080405
  Serious: Yes (Hospitalization)
  Sender: FDA-Public Use
  Company Number: TR-ELI_LILLY_AND_COMPANY-TR200711006330

PATIENT
  Age: 58 Year
  Sex: Male

DRUGS (2)
  1. HUMULIN 70/30 [Suspect]
     Indication: TYPE 2 DIABETES MELLITUS
     Dosage: 16 U, EACH MORNING
     Route: 058
  2. HUMULIN 70/30 [Suspect]
     Dosage: 16 U, EACH EVENING
     Route: 058

REACTIONS (2)
  - ANGIOGRAM [None]
  - EYE LASER SURGERY [None]
